FAERS Safety Report 7251673-X (Version None)
Quarter: 2011Q1

REPORT INFORMATION
  Report Type: 
  Country: None (occurrence: None)
  Receive Date: 20110128
  Receipt Date: 20110118
  Transmission Date: 20110831
  Serious: Yes (Other)
  Sender: FDA-Public Use
  Company Number: US-BAYER-2011-006341

PATIENT
  Sex: Female

DRUGS (1)
  1. AVELOX [Suspect]
     Indication: SINUSITIS
     Dosage: 400 MG, QD
     Route: 048
     Dates: start: 20110107, end: 20110108

REACTIONS (6)
  - PARAESTHESIA [None]
  - FATIGUE [None]
  - INFLUENZA LIKE ILLNESS [None]
  - DYSPEPSIA [None]
  - PAIN [None]
  - MOBILITY DECREASED [None]
